FAERS Safety Report 8301999-3 (Version None)
Quarter: 2012Q2

REPORT INFORMATION
  Report Type: 
  Country: None (occurrence: None)
  Receive Date: 20120420
  Receipt Date: 20120417
  Transmission Date: 20120825
  Serious: Yes (Hospitalization, Other)
  Sender: FDA-Public Use
  Company Number: PHHY2012DK032796

PATIENT
  Sex: Female

DRUGS (2)
  1. GESTODENE AND ETHINYL ESTRADIOL [Suspect]
     Indication: DYSMENORRHOEA
  2. GESTODENE AND ETHINYL ESTRADIOL [Suspect]
     Indication: CONTRACEPTION

REACTIONS (13)
  - PYREXIA [None]
  - BACK PAIN [None]
  - THROMBOSIS [None]
  - CARDIAC MURMUR [None]
  - NASOPHARYNGITIS [None]
  - COUGH [None]
  - PNEUMONIA [None]
  - CHEST PAIN [None]
  - OROPHARYNGEAL PAIN [None]
  - FIBRIN D DIMER INCREASED [None]
  - PULMONARY EMBOLISM [None]
  - OEDEMA PERIPHERAL [None]
  - SKIN DISCOLOURATION [None]
